FAERS Safety Report 10388102 (Version 1)
Quarter: 2014Q3

REPORT INFORMATION
  Report Type: Report from Study
  Country: BR (occurrence: BR)
  Receive Date: 20140815
  Receipt Date: 20140815
  Transmission Date: 20150326
  Serious: Yes (Other)
  Sender: FDA-Public Use
  Company Number: PHHY2014BR101776

PATIENT
  Sex: Male

DRUGS (1)
  1. EXELON PATCH [Suspect]
     Active Substance: RIVASTIGMINE
     Dosage: ONLY TWO ADHESIVES
     Route: 062

REACTIONS (5)
  - Neoplasm malignant [Unknown]
  - Choking [Unknown]
  - Gait disturbance [Unknown]
  - Parkinson^s disease [Unknown]
  - Tremor [Recovering/Resolving]
